FAERS Safety Report 23563963 (Version 2)
Quarter: 2024Q1

REPORT INFORMATION
  Report Type: Report from Study
  Country: ES (occurrence: ES)
  Receive Date: 20240226
  Receipt Date: 20240327
  Transmission Date: 20240410
  Serious: Yes (Disabling)
  Sender: FDA-Public Use
  Company Number: ES-TEVA-VS-3158448

PATIENT
  Age: 78 Year
  Sex: Female

DRUGS (4)
  1. TERIPARATIDE [Suspect]
     Active Substance: TERIPARATIDE
     Indication: Osteoporosis
     Dosage: DOSE: 20MC/80MCL
     Route: 065
     Dates: end: 20240206
  2. HYDREA [Concomitant]
     Active Substance: HYDROXYUREA
     Indication: Neoplasm malignant
  3. AMIODARONE [Concomitant]
     Active Substance: AMIODARONE
     Indication: Arrhythmia
  4. EXEMESTANE [Concomitant]
     Active Substance: EXEMESTANE
     Indication: Breast cancer

REACTIONS (9)
  - Fatigue [Unknown]
  - Dizziness [Unknown]
  - Arthralgia [Unknown]
  - Myalgia [Unknown]
  - Back pain [Unknown]
  - Headache [Unknown]
  - Haemoglobin increased [Unknown]
  - Red blood cell count decreased [Unknown]
  - Fatigue [Unknown]

NARRATIVE: CASE EVENT DATE: 20240206
